FAERS Safety Report 6482710-8 (Version None)
Quarter: 2009Q4

REPORT INFORMATION
  Report Type: 
  Country: None (occurrence: None)
  Receive Date: 20091209
  Receipt Date: 20091127
  Transmission Date: 20100525
  Serious: Yes (Life-Threatening)
  Sender: FDA-Public Use
  Company Number: RO-JNJFOC-20091200260

PATIENT
  Sex: Female

DRUGS (6)
  1. REMICADE [Suspect]
     Route: 042
  2. REMICADE [Suspect]
     Route: 042
  3. REMICADE [Suspect]
     Route: 042
  4. REMICADE [Suspect]
     Indication: RHEUMATOID ARTHRITIS
     Route: 042
  5. METHOTREXAT [Concomitant]
     Indication: RHEUMATOID ARTHRITIS
     Route: 048
  6. DICLOREUM [Concomitant]
     Route: 048

REACTIONS (7)
  - ABNORMAL SENSATION IN EYE [None]
  - CHEST DISCOMFORT [None]
  - HYPERHIDROSIS [None]
  - INFUSION RELATED REACTION [None]
  - PAIN [None]
  - SENSORY DISTURBANCE [None]
  - SUFFOCATION FEELING [None]
